FAERS Safety Report 5233008-7 (Version None)
Quarter: 2007Q1

REPORT INFORMATION
  Report Type: 
  Country: None (occurrence: None)
  Receive Date: 20070207
  Receipt Date: 20070126
  Transmission Date: 20070707
  Serious: Yes (Hospitalization, Other)
  Sender: FDA-Public Use
  Company Number: US-PFIZER INC-2006134470

PATIENT
  Sex: Male
  Weight: 84.8 kg

DRUGS (2)
  1. BEXTRA [Suspect]
     Indication: MUSCULOSKELETAL PAIN
     Dates: start: 20030101, end: 20041201
  2. BEXTRA [Suspect]
     Indication: BACK PAIN

REACTIONS (1)
  - CEREBROVASCULAR ACCIDENT [None]
